FAERS Safety Report 18576962 (Version 3)
Quarter: 2021Q2

REPORT INFORMATION
  Report Type: Report from Study
  Country: US (occurrence: US)
  Receive Date: 20201203
  Receipt Date: 20210623
  Transmission Date: 20210717
  Serious: Yes (Hospitalization, Other)
  Sender: FDA-Public Use
  Company Number: NVSC2020US322597

PATIENT
  Age: 42 Year
  Sex: Female

DRUGS (4)
  1. KESIMPTA [Suspect]
     Active Substance: OFATUMUMAB
     Indication: RELAPSING-REMITTING MULTIPLE SCLEROSIS
     Dosage: 20 MG, QMO (SOLUTION)
     Route: 058
  2. KESIMPTA [Suspect]
     Active Substance: OFATUMUMAB
     Indication: PROGRESSIVE MULTIPLE SCLEROSIS
  3. KESIMPTA [Suspect]
     Active Substance: OFATUMUMAB
     Indication: MULTIPLE SCLEROSIS
     Dosage: UNK (BENEATH THE SKIN, USUALLY VIA INJECTION)
     Route: 058
     Dates: start: 20201113
  4. KESIMPTA [Suspect]
     Active Substance: OFATUMUMAB
     Indication: CLINICALLY ISOLATED SYNDROME

REACTIONS (4)
  - Multiple sclerosis relapse [Recovering/Resolving]
  - Pain in extremity [Recovering/Resolving]
  - Paraesthesia [Recovering/Resolving]
  - Oral herpes [Recovered/Resolved]

NARRATIVE: CASE EVENT DATE: 20210609
